FAERS Safety Report 7819098-3 (Version None)
Quarter: 2011Q4

REPORT INFORMATION
  Report Type: 
  Country: None (occurrence: None)
  Receive Date: 20111004
  Receipt Date: 20110928
  Transmission Date: 20120403
  Serious: Yes (Hospitalization)
  Sender: FDA-Public Use
  Company Number: 2011029918

PATIENT
  Age: 53 Year
  Sex: Male

DRUGS (4)
  1. RITUXAN [Concomitant]
  2. FLUDARA [Concomitant]
  3. CYCLOPHOSPHAMIDE [Concomitant]
  4. PRIVIGEN [Suspect]
     Indication: CHRONIC LYMPHOCYTIC LEUKAEMIA
     Dosage: 10 G, QD, INTRAVENOUS
     Route: 042
     Dates: start: 20110725, end: 20110725

REACTIONS (1)
  - BRONCHITIS BACTERIAL [None]
